FAERS Safety Report 5024195-4 (Version None)
Quarter: 2006Q2

REPORT INFORMATION
  Report Type: 
  Country: None (occurrence: None)
  Receive Date: 20060428
  Receipt Date: 20050324
  Transmission Date: 20061013
  Serious: Yes (Death)
  Sender: FDA-Public Use
  Company Number: 2005P1000197

PATIENT
  Age: 29 Year
  Sex: Male

DRUGS (3)
  1. BUSULFAN (BUSULFAN) [Suspect]
     Indication: BONE MARROW CONDITIONING REGIMEN
     Dosage: 184.8 MG; QD
     Dates: start: 20030604, end: 20030608
  2. CYCLOPHOSPHAMIDE [Concomitant]
  3. MESNA [Concomitant]

REACTIONS (1)
  - GRAFT VERSUS HOST DISEASE [None]
